FAERS Safety Report 7479034-9 (Version None)
Quarter: 2011Q2

REPORT INFORMATION
  Report Type: 
  Country: None (occurrence: None)
  Receive Date: 20110513
  Receipt Date: 20110505
  Transmission Date: 20111010
  Serious: Yes (Hospitalization, Other)
  Sender: FDA-Public Use
  Company Number: PHHY2011GB37811

PATIENT
  Age: 75 Year
  Sex: Male

DRUGS (7)
  1. ATENOLOL [Suspect]
     Indication: HYPERTENSION
     Dosage: 50 MG, QD
     Route: 048
  2. AZD5363 [Suspect]
     Indication: NEOPLASM MALIGNANT
     Dosage: 160 MG, BID
     Route: 048
     Dates: start: 20110222
  3. SPIRONOLACTONE [Suspect]
     Indication: HYPERTENSION
     Dosage: 100 MG, QD
     Route: 048
     Dates: start: 20110222
  4. ROSUVASTATIN [Concomitant]
     Indication: HYPERCHOLESTEROLAEMIA
     Dosage: 10 MG, QD
     Route: 048
     Dates: start: 20110214
  5. NATURETIN-5 [Concomitant]
     Indication: HYPERTENSION
     Dosage: 2.5 MG, QD
     Route: 048
     Dates: end: 20110222
  6. AZD5363 [Suspect]
     Dosage: 160 MG, QD
     Route: 048
     Dates: start: 20110301
  7. SIMVASTATIN [Concomitant]
     Indication: HYPERCHOLESTEROLAEMIA
     Dosage: 40 MG, QD
     Route: 048
     Dates: end: 20110214

REACTIONS (2)
  - HYPOKALAEMIA [None]
  - SINUS BRADYCARDIA [None]
